FAERS Safety Report 15684335 (Version 1)
Quarter: 2018Q4

REPORT INFORMATION
  Report Type: Spontaneous
  Country: US (occurrence: US)
  Receive Date: 20181121
  Receipt Date: 20181121
  Transmission Date: 20190205
  Serious: No
  Sender: FDA-Public Use
  Company Number: None

PATIENT
  Age: 51 Year
  Weight: 88 kg

DRUGS (1)
  1. JARDIANCE [Suspect]
     Active Substance: EMPAGLIFLOZIN
     Indication: DIABETES MELLITUS
     Route: 048
     Dates: start: 20181019, end: 20181024

REACTIONS (7)
  - Nausea [None]
  - Vomiting [None]
  - Polydipsia [None]
  - Fatigue [None]
  - Weight decreased [None]
  - Diabetic ketoacidosis [None]
  - Polyuria [None]

NARRATIVE: CASE EVENT DATE: 20181024
